FAERS Safety Report 5489522-2 (Version None)
Quarter: 2007Q4

REPORT INFORMATION
  Report Type: 
  Country: None (occurrence: None)
  Receive Date: 20071016
  Receipt Date: 20071016
  Transmission Date: 20080405
  Serious: No
  Sender: FDA-Public Use
  Company Number: None

PATIENT

DRUGS (19)
  1. SUTENT [Suspect]
  2. METOPROLOL TARTRATE [Concomitant]
  3. METFORMIN [Concomitant]
  4. SYNTHROID [Concomitant]
  5. SIMVASTATIN [Concomitant]
  6. DIOVAN [Concomitant]
  7. PROTONIX [Concomitant]
  8. MULTI-VITAMIN [Concomitant]
  9. FISH OIL [Concomitant]
  10. FLAX OIL [Concomitant]
  11. SELENIUM [Concomitant]
  12. DHEA [Concomitant]
  13. CITRUCEL [Concomitant]
  14. PEPCID [Concomitant]
  15. SIMETHICONE [Concomitant]
  16. ACIPHEX [Concomitant]
  17. MAGNESIUM SULFATE [Concomitant]
  18. FERROUS SULFATE TAB [Concomitant]
  19. SUPER B COMPLEX WITH VITAMIN C [Concomitant]

REACTIONS (2)
  - MUCOSAL INFLAMMATION [None]
  - THROMBOCYTOPENIA [None]
